FAERS Safety Report 5940934-X (Version None)
Quarter: 2008Q4

REPORT INFORMATION
  Report Type: 
  Country: None (occurrence: None)
  Receive Date: 20081104
  Receipt Date: 20081024
  Transmission Date: 20090506
  Serious: Yes (Hospitalization, Other)
  Sender: FDA-Public Use
  Company Number: PHEH2008US09567

PATIENT
  Sex: Female

DRUGS (1)
  1. LOTREL [Suspect]

REACTIONS (3)
  - CHEILITIS [None]
  - LIP SWELLING [None]
  - OEDEMA MOUTH [None]
